FAERS Safety Report 4613902-8 (Version None)
Quarter: 2005Q1

REPORT INFORMATION
  Report Type: 
  Country: None (occurrence: None)
  Receive Date: 20050321
  Receipt Date: 20050202
  Transmission Date: 20050727
  Serious: Yes (Other)
  Sender: FDA-Public Use
  Company Number: CA-GLAXOSMITHKLINE-A0544033A

PATIENT
  Age: 73 Year
  Sex: Male

DRUGS (3)
  1. REQUIP [Suspect]
     Indication: PARKINSON'S DISEASE
     Route: 048
     Dates: start: 20011012, end: 20041122
  2. SINEMET [Concomitant]
     Indication: PARKINSON'S DISEASE
     Dosage: 700MG PER DAY
  3. TOLCAPONE [Concomitant]
     Indication: PARKINSON'S DISEASE
     Dosage: 100MG TWICE PER DAY

REACTIONS (1)
  - GAMBLING [None]
